FAERS Safety Report 9354002 (Version 1)
Quarter: 2013Q2

REPORT INFORMATION
  Report Type: Spontaneous
  Country: CH (occurrence: CH)
  Receive Date: 20130618
  Receipt Date: 20130618
  Transmission Date: 20140414
  Serious: Yes (Life-Threatening, Hospitalization)
  Sender: FDA-Public Use
  Company Number: CH-PFIZER INC-2013177813

PATIENT
  Age: 57 Year
  Sex: Male

DRUGS (18)
  1. DIFLUCAN [Suspect]
     Dosage: 200 MG, 1X/DAY
     Route: 041
     Dates: start: 20130522, end: 20130530
  2. PANTOZOL [Suspect]
     Dosage: 40 MG, DAILY
     Route: 041
     Dates: start: 20130506, end: 20130510
  3. PANTOZOL [Suspect]
     Dosage: 40 MG, DAILY
     Route: 041
     Dates: start: 20130518
  4. SOLDACTONE [Suspect]
     Dosage: 100 MG, 1X/DAY
     Route: 041
     Dates: start: 20130518, end: 20130527
  5. TAZOBAC [Suspect]
     Dosage: 4.5 G, 3X/DAY
     Route: 041
     Dates: start: 20130511, end: 20130531
  6. METRONIDAZOLE [Suspect]
     Dosage: 1 DF, UNK
     Route: 041
     Dates: start: 20130531, end: 20130603
  7. CEFEPIME ORPHA [Suspect]
     Dosage: 1 G, 2X/DAY
     Route: 041
     Dates: start: 20130531, end: 20130603
  8. CLEXANE [Suspect]
     Dosage: 80 MG, 1X/DAY
     Route: 058
     Dates: start: 20130529, end: 20130531
  9. DAFALGAN [Suspect]
     Dosage: 1 G, 4X/DAY
     Route: 048
     Dates: start: 20130510, end: 20130517
  10. DUROGESIC [Suspect]
     Dosage: 0.3333 DF, 1 DF, EVERY 72 HOURS
     Route: 062
     Dates: start: 20130510
  11. FENTANYL ^JANSSEN^ [Suspect]
     Dosage: 25 UG, AS NEEDED
     Route: 040
     Dates: start: 20130510
  12. HEPARIN [Suspect]
     Dosage: UNK
     Route: 041
     Dates: start: 201305
  13. LASIX [Suspect]
     Dosage: 10 MG, AS NEEDED
     Route: 040
     Dates: start: 20130511
  14. NOVALGIN [Suspect]
     Dosage: 1000 MG, 4X/DAY
     Route: 041
     Dates: start: 20130526, end: 20130530
  15. NOVORAPID [Suspect]
     Dosage: UNK
     Route: 041
     Dates: start: 20130508
  16. PERFALGAN [Suspect]
     Dosage: 1 G, 3X/DAY
     Route: 041
     Dates: start: 20130518, end: 20130525
  17. PRIMPERAN [Suspect]
     Dosage: 10 MG, 4X/DAY
     Route: 040
     Dates: start: 20130505
  18. VANCOCIN [Suspect]
     Dosage: UNK
     Route: 041
     Dates: start: 20130519, end: 20130524

REACTIONS (3)
  - Agranulocytosis [Not Recovered/Not Resolved]
  - Leukopenia [Not Recovered/Not Resolved]
  - Monocytopenia [Not Recovered/Not Resolved]
